FAERS Safety Report 5953256-8 (Version None)
Quarter: 2008Q4

REPORT INFORMATION
  Report Type: 
  Country: None (occurrence: None)
  Receive Date: 20081114
  Receipt Date: 20081106
  Transmission Date: 20090506
  Serious: Yes (Disabling)
  Sender: FDA-Public Use
  Company Number: PHEH2008US06692

PATIENT
  Sex: Female
  Weight: 54.422 kg

DRUGS (24)
  1. RECLAST [Suspect]
     Indication: OSTEOPOROSIS
     Dosage: 5 MG, ONCE/SINGLE
     Dates: start: 20080417, end: 20080417
  2. PROVIGIL [Concomitant]
     Indication: NARCOLEPSY
     Dosage: 200 MG, QD
     Route: 048
  3. CLONAZEPAM [Concomitant]
     Indication: ANXIETY
     Dosage: 0.5MG 2 TO 3 TIMES DAILY
  4. MAXAIR [Concomitant]
     Indication: ASTHMA
     Dosage: UNK
  5. SPIRIVA [Concomitant]
     Indication: ASTHMA
     Dosage: 18 UG, QD
  6. ADVAIR DISKUS 100/50 [Concomitant]
     Indication: ASTHMA
     Dosage: 500-50, 1 PUFF BID
  7. IMITREX ^CERENEX^ [Concomitant]
     Dosage: UNK
  8. MIRAPEX [Concomitant]
     Dosage: UNK
  9. ZYRTEC [Concomitant]
  10. CALCIUM CITRATE [Concomitant]
  11. SINGULAIR [Concomitant]
  12. RHINOCORT (BECLOMETASONE DIPROPIONATE) [Concomitant]
     Dosage: 1 TO 2 SPRAYS IN EACH NOSTRIL DAILY
     Route: 045
  13. AMOXICILLIN [Concomitant]
     Dosage: 875 MG, BID
     Route: 048
  14. DICYCLOMINE [Concomitant]
     Dosage: 10 MG, EVERY 6-8 HOURS
     Route: 048
  15. DOXYCYCLINE [Concomitant]
     Dosage: 100 MG, BID
     Route: 048
  16. FLUCONAZOLE [Concomitant]
     Dosage: 150 MG, QD
     Route: 048
  17. FROVA [Concomitant]
     Indication: MIGRAINE
     Dosage: 1 TABLET AS NEEDED, MAY REPEAT IN 2 HOURS AS NEEDED
     Route: 048
  18. HYOSCYAMINE [Concomitant]
     Dosage: 0.125 MG, BID, PRN
     Route: 060
  19. MAXAIR [Concomitant]
     Dosage: 2 PUFFS EVERY 4 TO 6 HOURS AS NEEDED
  20. MEDROXYPROGESTERONE [Concomitant]
     Dosage: 1 TABLET EVERY DAY FOR 10 DAYS OF THE MONTH
     Route: 048
  21. PREMARIN [Concomitant]
     Dosage: ONE TIME DAILY AT HS FOR 2 WEEKS, THEN 3 TIMES A WEEK THEREAFTER
     Route: 067
  22. PREVACID [Concomitant]
     Dosage: 30 MG, QD
     Route: 048
  23. TRAMADOL HCL [Concomitant]
     Dosage: 50 MG, TID
     Route: 048
  24. VAGIFEM [Concomitant]
     Dosage: INSERT 1 VAGINALLY X 1 WEEK, THEN 2-3 TIMES X 1 WEEK, THEN 1-2 TIMES PER WEEK
     Route: 067

REACTIONS (10)
  - ARTHRALGIA [None]
  - BEDRIDDEN [None]
  - BONE PAIN [None]
  - FATIGUE [None]
  - HEADACHE [None]
  - INFLUENZA [None]
  - MYALGIA [None]
  - NAUSEA [None]
  - PAIN [None]
  - SWELLING [None]
